FAERS Safety Report 7075674-X (Version None)
Quarter: 2010Q4

REPORT INFORMATION
  Report Type: 
  Country: None (occurrence: None)
  Receive Date: 20101031
  Receipt Date: 20101029
  Transmission Date: 20110411
  Serious: Yes (Hospitalization, Other)
  Sender: FDA-Public Use
  Company Number: US-WYE-H18427510

PATIENT
  Sex: Female

DRUGS (6)
  1. EFFEXOR XR [Suspect]
     Dosage: UNKNOWN
     Route: 048
  2. EFFEXOR XR [Suspect]
     Dosage: UNKNOWN
     Route: 048
  3. EFFEXOR XR [Suspect]
     Dosage: ^WENT OFF SLOWLY^ (DOSE REDUCTION UNKNOWN)
     Route: 048
  4. EFFEXOR XR [Suspect]
     Route: 048
  5. EFFEXOR XR [Suspect]
     Dosage: ^TRIED TO SKIP TWO DAYS^
     Route: 048
  6. EFFEXOR XR [Suspect]
     Dosage: UNKNOWN
     Route: 048

REACTIONS (4)
  - CONDITION AGGRAVATED [None]
  - DEPRESSION [None]
  - DRUG DEPENDENCE [None]
  - DRUG WITHDRAWAL SYNDROME [None]
